FAERS Safety Report 14506804 (Version 1)
Quarter: 2018Q1

REPORT INFORMATION
  Report Type: Spontaneous
  Country: US (occurrence: US)
  Receive Date: 20180207
  Receipt Date: 20180207
  Transmission Date: 20180509
  Serious: Yes (Life-Threatening, Other)
  Sender: FDA-Public Use
  Company Number: None

PATIENT
  Age: 53 Year
  Sex: Female
  Weight: 67.5 kg

DRUGS (6)
  1. MULTI-VITAMIN [Concomitant]
     Active Substance: .ALPHA.-TOCOPHEROL ACETATE, DL-\ASCORBIC ACID\CYANOCOBALAMIN\FLUORIDE ION\FOLIC ACID\NIACIN\PYRIDOXINE\RIBOFLAVIN\THIAMINE\VITAMIN A\VITAMIN D
  2. CLARAVIS [Suspect]
     Active Substance: ISOTRETINOIN
     Indication: ACNE CYSTIC
     Dosage: ?          QUANTITY:2 CAPSULE(S);?
     Route: 048
  3. TRINTELLIX [Concomitant]
     Active Substance: VORTIOXETINE HYDROBROMIDE
  4. PROGESTERONE. [Concomitant]
     Active Substance: PROGESTERONE
  5. FISH OIL-OMEGA 3 [Concomitant]
  6. ABILIFY [Concomitant]
     Active Substance: ARIPIPRAZOLE

REACTIONS (6)
  - Anhedonia [None]
  - Feeling abnormal [None]
  - Suicidal ideation [None]
  - Personality change [None]
  - Quality of life decreased [None]
  - Anxiety [None]

NARRATIVE: CASE EVENT DATE: 20170814
